FAERS Safety Report 22146814 (Version 1)
Quarter: 2023Q1

REPORT INFORMATION
  Report Type: Spontaneous
  Country: US (occurrence: None)
  Receive Date: 20230327
  Receipt Date: 20230327
  Transmission Date: 20230418
  Serious: No
  Sender: FDA-Public Use
  Company Number: None

PATIENT
  Age: 59 Year
  Sex: Male

DRUGS (2)
  1. BREYANZI [Suspect]
     Active Substance: LISOCABTAGENE MARALEUCEL
  2. COSMETICS [Suspect]
     Active Substance: COSMETICS

REACTIONS (5)
  - Neurotoxicity [None]
  - Multiple organ dysfunction syndrome [None]
  - Bacteraemia [None]
  - Malignant gastrointestinal obstruction [None]
  - Cytokine release syndrome [None]

NARRATIVE: CASE EVENT DATE: 20221216
